FAERS Safety Report 16972845 (Version 2)
Quarter: 2020Q1

REPORT INFORMATION
  Report Type: Spontaneous
  Country: US (occurrence: US)
  Receive Date: 20191030
  Receipt Date: 20200327
  Transmission Date: 20200409
  Serious: No
  Sender: FDA-Public Use
  Company Number: NVSC2019US015505

PATIENT
  Age: 65 Year
  Sex: Male

DRUGS (1)
  1. TRIESENCE [Suspect]
     Active Substance: TRIAMCINOLONE ACETONIDE
     Indication: VITRECTOMY
     Dosage: 1 DF, QD
     Route: 031
     Dates: start: 20190402, end: 20190402

REACTIONS (1)
  - Non-infectious endophthalmitis [Recovering/Resolving]

NARRATIVE: CASE EVENT DATE: 20190404
